FAERS Safety Report 9953218 (Version 1)
Quarter: 2014Q1

REPORT INFORMATION
  Report Type: Report from Study
  Country: US (occurrence: US)
  Receive Date: 20140304
  Receipt Date: 20140304
  Transmission Date: 20141002
  Serious: No
  Sender: FDA-Public Use
  Company Number: US-ABBVIE-13P-163-1076919-00

PATIENT
  Age: 29 Year
  Sex: Female

DRUGS (6)
  1. HUMIRA [Suspect]
     Indication: RHEUMATOID ARTHRITIS
     Dates: start: 20130214
  2. METHOTREXATE [Concomitant]
     Indication: RHEUMATOID ARTHRITIS
  3. NADOLOL [Concomitant]
     Indication: MIGRAINE PROPHYLAXIS
  4. PREDNISONE [Concomitant]
     Indication: RHEUMATOID ARTHRITIS
  5. CYMBALTA [Concomitant]
     Indication: PAIN
  6. YAZ [Concomitant]
     Indication: CONTRACEPTION
     Dosage: DAILY

REACTIONS (3)
  - Device malfunction [Unknown]
  - Migraine [Not Recovered/Not Resolved]
  - Injection site urticaria [Recovered/Resolved]
